FAERS Safety Report 6242596-3 (Version None)
Quarter: 2009Q2

REPORT INFORMATION
  Report Type: 
  Country: None (occurrence: None)
  Receive Date: 20090617
  Receipt Date: 20080527
  Transmission Date: 20091009
  Serious: No
  Sender: FDA-Public Use
  Company Number: 275781

PATIENT
  Age: 76 Year
  Sex: Male

DRUGS (1)
  1. LEVEMIR [Suspect]
     Indication: INSULIN-REQUIRING TYPE 2 DIABETES MELLITUS
     Dosage: 15 U, QD (AM), SUBCUTANEOUS
     Route: 058
     Dates: start: 20080520

REACTIONS (3)
  - ABDOMINAL DISCOMFORT [None]
  - DIARRHOEA [None]
  - NAUSEA [None]
